FAERS Safety Report 4786640-9 (Version None)
Quarter: 2005Q4

REPORT INFORMATION
  Report Type: 
  Country: None (occurrence: None)
  Receive Date: 20051003
  Receipt Date: 20051003
  Transmission Date: 20060501
  Serious: Yes (Disabling)
  Sender: FDA-Public Use
  Company Number: None

PATIENT
  Age: 53 Year
  Sex: Male
  Weight: 72.5755 kg

DRUGS (3)
  1. CIPRO [Suspect]
     Indication: PROSTATITIS
     Dosage: 500 MG TWICE A DAY PO
     Route: 048
     Dates: start: 20050902, end: 20050919
  2. ARICEPT [Concomitant]
  3. XANAX [Concomitant]

REACTIONS (7)
  - ANXIETY [None]
  - DECREASED APPETITE [None]
  - DIFFICULTY IN WALKING [None]
  - MALAISE [None]
  - PAIN [None]
  - TENDON DISORDER [None]
  - WEIGHT DECREASED [None]
